FAERS Safety Report 7050916-5 (Version None)
Quarter: 2010Q4

REPORT INFORMATION
  Report Type: 
  Country: None (occurrence: None)
  Receive Date: 20101018
  Receipt Date: 20101018
  Transmission Date: 20110411
  Serious: Yes (Other)
  Sender: FDA-Public Use
  Company Number: None

PATIENT
  Sex: Male
  Weight: 7.5 kg

DRUGS (1)
  1. GAMMAGARD LIQUID [Suspect]
     Indication: BLOOD IMMUNOGLOBULIN G DECREASED
     Dosage: 3.75 GRAMS ONCE IV
     Route: 042
     Dates: start: 20100913, end: 20100913

REACTIONS (1)
  - RASH [None]
